FAERS Safety Report 10513825 (Version 3)
Quarter: 2015Q1

REPORT INFORMATION
  Report Type: Report from Study
  Country: JP (occurrence: JP)
  Receive Date: 20141013
  Receipt Date: 20150327
  Transmission Date: 20150720
  Serious: Yes (Other)
  Sender: FDA-Public Use
  Company Number: PHHY2013JP050132

PATIENT
  Age: 60 Year
  Sex: Female
  Weight: 42 kg

DRUGS (35)
  1. CLOZARIL [Suspect]
     Active Substance: CLOZAPINE
     Dosage: 125 MG, UNK
     Route: 048
     Dates: start: 20121119, end: 20121120
  2. CLOZARIL [Suspect]
     Active Substance: CLOZAPINE
     Dosage: 12.5 MG, UNK
     Route: 048
     Dates: start: 20121127, end: 20121127
  3. CLOZARIL [Suspect]
     Active Substance: CLOZAPINE
     Dosage: 25 MG, UNK
     Route: 048
     Dates: start: 20121128, end: 20121130
  4. EURODIN [Concomitant]
     Active Substance: ESTAZOLAM
     Indication: SCHIZOPHRENIA, UNDIFFERENTIATED TYPE
     Dosage: 2 MG, UNK
     Route: 048
     Dates: start: 20121106
  5. CLOZARIL [Suspect]
     Active Substance: CLOZAPINE
     Indication: SCHIZOPHRENIA, UNDIFFERENTIATED TYPE
     Dosage: 12.5 MG, UNK
     Route: 048
     Dates: start: 20121106, end: 20121106
  6. CLOZARIL [Suspect]
     Active Substance: CLOZAPINE
     Dosage: 75 MG, UNK
     Route: 048
     Dates: start: 20121113, end: 20121115
  7. CLOZARIL [Suspect]
     Active Substance: CLOZAPINE
     Dosage: 75 MG, UNK
     Route: 048
     Dates: start: 20121204, end: 20121205
  8. CLOZARIL [Suspect]
     Active Substance: CLOZAPINE
     Dosage: 600 MG, UNK
     Route: 048
     Dates: start: 20130305, end: 20130325
  9. CLOZARIL [Suspect]
     Active Substance: CLOZAPINE
     Dosage: 50 MG, UNK
     Route: 048
     Dates: start: 20121110, end: 20121112
  10. CLOZARIL [Suspect]
     Active Substance: CLOZAPINE
     Dosage: 100 MG, UNK
     Route: 048
     Dates: start: 20121116, end: 20121118
  11. CLOZARIL [Suspect]
     Active Substance: CLOZAPINE
     Dosage: 100 MG, UNK
     Route: 048
     Dates: start: 20121211, end: 20121212
  12. CLOZARIL [Suspect]
     Active Substance: CLOZAPINE
     Dosage: 125 MG, UNK
     Route: 048
     Dates: start: 20121213, end: 20121215
  13. CLOZARIL [Suspect]
     Active Substance: CLOZAPINE
     Dosage: 150 MG, UNK
     Route: 048
     Dates: start: 20121216, end: 20121219
  14. CLOZARIL [Suspect]
     Active Substance: CLOZAPINE
     Dosage: 550 MG, UNK
     Route: 048
     Dates: start: 20130129
  15. CLOZARIL [Suspect]
     Active Substance: CLOZAPINE
     Dosage: 25 MG, UNK
     Route: 048
     Dates: start: 20121107, end: 20121109
  16. CLOZARIL [Suspect]
     Active Substance: CLOZAPINE
     Dosage: 150 MG, UNK
     Route: 048
     Dates: start: 20121121, end: 20121123
  17. CLOZARIL [Suspect]
     Active Substance: CLOZAPINE
     Dosage: 100 MG, UNK
     Route: 048
     Dates: start: 20121206, end: 20121208
  18. CLOZARIL [Suspect]
     Active Substance: CLOZAPINE
     Dosage: 250 MG, UNK
     Route: 048
     Dates: start: 20121227, end: 20130104
  19. CLOZARIL [Suspect]
     Active Substance: CLOZAPINE
     Dosage: 400 MG, UNK
     Route: 048
     Dates: start: 20130111, end: 20130116
  20. CLOZARIL [Suspect]
     Active Substance: CLOZAPINE
     Dosage: 450 MG, UNK
     Route: 048
     Dates: start: 20130117, end: 20130121
  21. CLOZARIL [Suspect]
     Active Substance: CLOZAPINE
     Dosage: 400 MG, UNK
     Route: 048
     Dates: start: 20130402, end: 20130416
  22. CLOZARIL [Suspect]
     Active Substance: CLOZAPINE
     Dosage: 125 MG, UNK
     Route: 048
     Dates: start: 20121209, end: 20121210
  23. CLOZARIL [Suspect]
     Active Substance: CLOZAPINE
     Dosage: 200 MG, UNK
     Route: 048
     Dates: start: 20121224, end: 20121226
  24. CLOZARIL [Suspect]
     Active Substance: CLOZAPINE
     Dosage: 500 MG, UNK
     Route: 048
     Dates: start: 20130122, end: 20130128
  25. ARIPIPRAZOLE. [Concomitant]
     Active Substance: ARIPIPRAZOLE
     Indication: SCHIZOPHRENIA, UNDIFFERENTIATED TYPE
     Dosage: 30 MG, UNK
     Route: 048
  26. CLOZARIL [Suspect]
     Active Substance: CLOZAPINE
     Dosage: 175 MG, UNK
     Route: 048
     Dates: start: 20121124, end: 20121124
  27. CLOZARIL [Suspect]
     Active Substance: CLOZAPINE
     Dosage: 350 MG, UNK
     Route: 048
     Dates: start: 20130108, end: 20130110
  28. WYPAX [Concomitant]
     Active Substance: LORAZEPAM
     Indication: SCHIZOPHRENIA, UNDIFFERENTIATED TYPE
     Dosage: 1 MG, UNK
     Route: 048
     Dates: start: 20121106, end: 20130128
  29. CLOZARIL [Suspect]
     Active Substance: CLOZAPINE
     Dosage: 50 MG, UNK
     Route: 048
     Dates: start: 20121201, end: 20121203
  30. CLOZARIL [Suspect]
     Active Substance: CLOZAPINE
     Dosage: 175 MG, UNK
     Route: 048
     Dates: start: 20121220, end: 20121223
  31. CLOZARIL [Suspect]
     Active Substance: CLOZAPINE
     Dosage: 300 MG, UNK
     Route: 048
     Dates: start: 20130105, end: 20130107
  32. CLOZARIL [Suspect]
     Active Substance: CLOZAPINE
     Dosage: 550 MG, UNK
     Route: 048
     Dates: start: 20130205, end: 20130304
  33. CLOZARIL [Suspect]
     Active Substance: CLOZAPINE
     Dosage: 500 MG, UNK
     Route: 048
     Dates: start: 20130326, end: 20130401
  34. EURODIN [Concomitant]
     Active Substance: ESTAZOLAM
     Dosage: 2 MG, UNK
     Route: 048
  35. OLANZAPINE. [Concomitant]
     Active Substance: OLANZAPINE
     Indication: SCHIZOPHRENIA, UNDIFFERENTIATED TYPE
     Dosage: 20 MG, UNK
     Route: 048

REACTIONS (6)
  - Cognitive disorder [Recovering/Resolving]
  - Akathisia [Recovering/Resolving]
  - Blood pressure decreased [Unknown]
  - Pyrexia [Recovered/Resolved]
  - Memory impairment [Recovered/Resolved]
  - Neutrophil count increased [Unknown]

NARRATIVE: CASE EVENT DATE: 20130207
